FAERS Safety Report 16778315 (Version 1)
Quarter: 2019Q3

REPORT INFORMATION
  Report Type: Spontaneous
  Country: NL (occurrence: NL)
  Receive Date: 20190906
  Receipt Date: 20190906
  Transmission Date: 20191005
  Serious: Yes (Congenital Anomaly)
  Sender: FDA-Public Use
  Company Number: NL-TEVA-2019-NL-1101688

PATIENT
  Age: 47 Year
  Sex: Male
  Weight: 88 kg

DRUGS (2)
  1. SYMBICORT TURBUHALER 200/6 [Concomitant]
  2. AMOXICILLINE CAPSULE, 500 MG (MILLIGRAM) [Suspect]
     Active Substance: AMOXICILLIN
     Indication: PNEUMONIA
     Dosage: 3X DAYS 1 ITEM, 500MG/8 HOURS
     Dates: start: 20190706

REACTIONS (2)
  - Hydrocele [Recovered/Resolved]
  - Pruritus generalised [Recovered/Resolved]

NARRATIVE: CASE EVENT DATE: 20190706
